FAERS Safety Report 4522376-7 (Version None)
Quarter: 2004Q4

REPORT INFORMATION
  Report Type: 
  Country: None (occurrence: None)
  Receive Date: 20041209
  Receipt Date: 20041203
  Transmission Date: 20050328
  Serious: Yes (Hospitalization)
  Sender: FDA-Public Use
  Company Number: FR-GLAXOSMITHKLINE-B0359248A

PATIENT
  Age: 82 Year
  Sex: Female

DRUGS (3)
  1. AUGMENTIN '125' [Suspect]
     Indication: LUNG DISORDER
     Dosage: 3G PER DAY
     Route: 048
     Dates: start: 20041019, end: 20041102
  2. OFLOCET [Suspect]
     Indication: LUNG DISORDER
     Dosage: 400MG PER DAY
     Route: 048
     Dates: start: 20041019, end: 20041102
  3. TRIFLUCAN [Suspect]
     Indication: LUNG DISORDER
     Dosage: 50MG PER DAY
     Route: 048
     Dates: start: 20041028, end: 20041103

REACTIONS (1)
  - PANCYTOPENIA [None]
